FAERS Safety Report 11157733 (Version 1)
Quarter: 2015Q2

REPORT INFORMATION
  Report Type: Spontaneous
  Country: IT (occurrence: None)
  Receive Date: 20150601
  Receipt Date: 20150601
  Transmission Date: 20150821
  Serious: Yes (Hospitalization)
  Sender: FDA-Public Use
  Company Number: DEP_02955_2015

PATIENT
  Sex: Male

DRUGS (1)
  1. PECFENT [Suspect]
     Active Substance: FENTANYL CITRATE
     Indication: PRODUCT USED FOR UNKNOWN INDICATION
     Dosage: 1 BOTTLE DF

REACTIONS (4)
  - Coma [None]
  - Dyspnoea [None]
  - Back disorder [None]
  - Loss of consciousness [None]

NARRATIVE: CASE EVENT DATE: 20150405
